FAERS Safety Report 6674406-4 (Version None)
Quarter: 2010Q1

REPORT INFORMATION
  Report Type: 
  Country: None (occurrence: None)
  Receive Date: 20100329
  Receipt Date: 20090604
  Transmission Date: 20100710
  Serious: Yes (Other)
  Sender: FDA-Public Use
  Company Number: 2009203129

PATIENT
  Age: 56 Year
  Sex: Male

DRUGS (2)
  1. GEODON [Suspect]
     Indication: DISEASE RECURRENCE
     Dates: start: 20090403
  2. GEODON [Suspect]
     Indication: MAJOR DEPRESSION
     Dates: start: 20090403

REACTIONS (1)
  - PARKINSONISM [None]
